FAERS Safety Report 5693272-7 (Version None)
Quarter: 2008Q2

REPORT INFORMATION
  Report Type: 
  Country: None (occurrence: None)
  Receive Date: 20080403
  Receipt Date: 20080325
  Transmission Date: 20081010
  Serious: Yes (Hospitalization)
  Sender: FDA-Public Use
  Company Number: US-ROCHE-428717

PATIENT
  Age: 82 Year
  Sex: Female
  Weight: 60.8 kg

DRUGS (3)
  1. BONIVA [Suspect]
     Indication: OSTEOPOROSIS
     Dosage: OTHER INDICATION: SOFT BONE DISEASE
     Route: 048
     Dates: start: 20051101, end: 20051101
  2. CALCIUM [Concomitant]
     Dosage: OTHER INDICATION: SOFT BONE DISEASE
     Route: 048
  3. PAIN MEDICATION NOS [Concomitant]
     Route: 048

REACTIONS (1)
  - GASTRIC HAEMORRHAGE [None]
